FAERS Safety Report 19509596 (Version 2)
Quarter: 2021Q3

REPORT INFORMATION
  Report Type: Spontaneous
  Country: US (occurrence: US)
  Receive Date: 20210708
  Receipt Date: 20210826
  Transmission Date: 20211014
  Serious: Yes (Death, Hospitalization)
  Sender: FDA-Public Use
  Company Number: US-TEVA-2021-US-1928883

PATIENT
  Age: 74 Year
  Sex: Male

DRUGS (1)
  1. AMIODARONE [Suspect]
     Active Substance: AMIODARONE
     Indication: VENTRICULAR TACHYCARDIA
     Dosage: 800 MILLIGRAM DAILY;
     Route: 065

REACTIONS (3)
  - Acute respiratory failure [Fatal]
  - Pulmonary toxicity [Fatal]
  - Bronchiectasis [Fatal]
